FAERS Safety Report 18678468 (Version 1)
Quarter: 2020Q4

REPORT INFORMATION
  Report Type: Spontaneous
  Country: SE (occurrence: SE)
  Receive Date: 20201229
  Receipt Date: 20201229
  Transmission Date: 20210114
  Serious: Yes (Life-Threatening, Hospitalization, Disabling, Other)
  Sender: FDA-Public Use
  Company Number: SE-SA-2020SA373569

PATIENT

DRUGS (6)
  1. STILNOCT [Suspect]
     Active Substance: ZOLPIDEM TARTRATE
     Dosage: UNK
     Route: 065
  2. HALDOL [Suspect]
     Active Substance: HALOPERIDOL
     Dosage: UNK
     Route: 065
     Dates: start: 2016, end: 2017
  3. LITHIONIT [Suspect]
     Active Substance: LITHIUM SULFATE
     Dosage: UNK
  4. LITHIUM CITRATE. [Suspect]
     Active Substance: LITHIUM CITRATE
     Dosage: 3-4 LITAREX 2008-2020
     Route: 065
     Dates: start: 2008, end: 2020
  5. OLANZAPINE. [Suspect]
     Active Substance: OLANZAPINE
     Dosage: UNK
  6. IMOVANE [Suspect]
     Active Substance: ZOPICLONE
     Dosage: UNK

REACTIONS (4)
  - Neurodegenerative disorder [Recovered/Resolved with Sequelae]
  - Stress [Recovered/Resolved with Sequelae]
  - Acne [Recovered/Resolved with Sequelae]
  - Mental fatigue [Recovered/Resolved with Sequelae]

NARRATIVE: CASE EVENT DATE: 2003
